FAERS Safety Report 5936346-5 (Version None)
Quarter: 2008Q4

REPORT INFORMATION
  Report Type: 
  Country: None (occurrence: None)
  Receive Date: 20081030
  Receipt Date: 20081020
  Transmission Date: 20090506
  Serious: Yes (Hospitalization)
  Sender: FDA-Public Use
  Company Number: CH-ELI_LILLY_AND_COMPANY-CH200810004602

PATIENT
  Age: 82 Year
  Sex: Male

DRUGS (11)
  1. ZYPREXA [Suspect]
     Dosage: 2.5 MG, EACH EVENING
     Route: 048
     Dates: start: 20080429, end: 20080430
  2. ZYPREXA [Suspect]
     Dosage: 5 MG, DAILY (1/D)
     Route: 048
     Dates: start: 20080501, end: 20080501
  3. ZYPREXA [Suspect]
     Dosage: 2.5 MG, DAILY (1/D)
     Route: 048
     Dates: start: 20080502, end: 20080501
  4. ZYPREXA [Suspect]
     Dosage: 2.5 MG, DAILY (1/D)
     Route: 048
     Dates: start: 20080504, end: 20080504
  5. ASPIRIN [Concomitant]
     Dosage: 100 MG, EACH MORNING
     Route: 048
     Dates: start: 20080428, end: 20080502
  6. MOVICOL [Concomitant]
     Dosage: 1 D/F, EACH MORNING
     Route: 048
     Dates: start: 20080430, end: 20080503
  7. SEROQUEL [Concomitant]
     Dosage: 25 MG, UNK
     Route: 048
     Dates: start: 20080428, end: 20080428
  8. SEROQUEL [Concomitant]
     Dosage: 50 MG, UNK
     Route: 048
     Dates: start: 20080429
  9. WELLBUTRIN [Concomitant]
     Dosage: 150 MG, DAILY (1/D)
     Route: 048
     Dates: start: 20080422, end: 20080429
  10. TEBOKAN [Concomitant]
     Dosage: UNK, 2/D
     Route: 048
  11. IRFEN [Concomitant]
     Dosage: UNK, UNK

REACTIONS (2)
  - DRUG ERUPTION [None]
  - TRAUMATIC BRAIN INJURY [None]
